FAERS Safety Report 22184887 (Version 1)
Quarter: 2023Q2

REPORT INFORMATION
  Report Type: Spontaneous
  Country: US (occurrence: US)
  Receive Date: 20230407
  Receipt Date: 20230407
  Transmission Date: 20230721
  Serious: Yes (Life-Threatening, Hospitalization, Other)
  Sender: FDA-Public Use
  Company Number: US-ALKEM LABORATORIES LIMITED-US-ALKEM-2023-03611

PATIENT
  Age: 82 Year
  Sex: Male

DRUGS (10)
  1. COLCHICINE [Interacting]
     Active Substance: COLCHICINE
     Indication: Gout
     Dosage: 0.6 MILLIGRAM, QD
     Route: 065
  2. COLCHICINE [Interacting]
     Active Substance: COLCHICINE
     Dosage: 4.8 MG/DAY (EIGHT TABLETS DAILY)
     Route: 065
  3. COLCHICINE [Interacting]
     Active Substance: COLCHICINE
     Dosage: 4.8 MG/DAY (SIX TABLETS DAILY)
     Route: 065
  4. COLCHICINE [Interacting]
     Active Substance: COLCHICINE
     Dosage: 4.8 MG/DAY (ONE TABLET DAILY)
     Route: 065
  5. COLCHICINE [Interacting]
     Active Substance: COLCHICINE
     Dosage: UNK (HIGH DOSE)
     Route: 065
  6. SUNITINIB [Interacting]
     Active Substance: SUNITINIB
     Indication: Renal cell carcinoma
     Dosage: 50 MILLIGRAM, HS (WITH 7-DAY BREAKS BETWEEN CYCLES)
     Route: 065
  7. DILTIAZEM [Concomitant]
     Active Substance: DILTIAZEM
     Indication: Product used for unknown indication
     Dosage: UNK
     Route: 065
  8. FUROSEMIDE [Concomitant]
     Active Substance: FUROSEMIDE
     Indication: Product used for unknown indication
     Dosage: UNK
     Route: 065
  9. LEVOTHYROXINE [Concomitant]
     Active Substance: LEVOTHYROXINE
     Indication: Product used for unknown indication
     Dosage: UNK
     Route: 065
  10. RABEPRAZOLE [Concomitant]
     Active Substance: RABEPRAZOLE
     Indication: Product used for unknown indication
     Dosage: UNK
     Route: 065

REACTIONS (15)
  - Hypotension [Unknown]
  - Pneumonia [Unknown]
  - Circulatory collapse [Unknown]
  - Acute left ventricular failure [Unknown]
  - Hypokalaemia [Unknown]
  - Leukopenia [Unknown]
  - Thrombocytopenia [Unknown]
  - Drug interaction [Unknown]
  - Metabolic acidosis [Unknown]
  - Diarrhoea [Unknown]
  - Troponin increased [Unknown]
  - Toxicity to various agents [Unknown]
  - Ejection fraction decreased [Unknown]
  - Hypomagnesaemia [Unknown]
  - Anaemia [Unknown]
